FAERS Safety Report 20606924 (Version 3)
Quarter: 2022Q2

REPORT INFORMATION
  Report Type: Report from Study
  Country: CA (occurrence: CA)
  Receive Date: 20220317
  Receipt Date: 20220526
  Transmission Date: 20220721
  Serious: Yes (Hospitalization, Other)
  Sender: FDA-Public Use
  Company Number: CA-ABBVIE-22K-028-4318704-00

PATIENT
  Age: 71 Year
  Sex: Male

DRUGS (1)
  1. LUPRON DEPOT [Suspect]
     Active Substance: LEUPROLIDE ACETATE
     Indication: Prostate cancer
     Route: 030
     Dates: start: 20200221

REACTIONS (9)
  - Bladder obstruction [Unknown]
  - Stent placement [Unknown]
  - Sepsis [Unknown]
  - Fall [Unknown]
  - Haemorrhage [Unknown]
  - General physical health deterioration [Unknown]
  - Mobility decreased [Unknown]
  - Walking aid user [Unknown]
  - Back pain [Unknown]

NARRATIVE: CASE EVENT DATE: 20220301
